FAERS Safety Report 7395706-9 (Version None)
Quarter: 2011Q2

REPORT INFORMATION
  Report Type: 
  Country: None (occurrence: None)
  Receive Date: 20110405
  Receipt Date: 20110103
  Transmission Date: 20111010
  Serious: No
  Sender: FDA-Public Use
  Company Number: US-BAYER-2011-027960

PATIENT
  Sex: Male

DRUGS (5)
  1. ALLOPURINOL [Concomitant]
  2. ALEVE (CAPLET) [Suspect]
     Indication: OSTEOARTHRITIS
     Dosage: BOTTLE COUNT 100S
     Route: 048
  3. COSOPT [Concomitant]
  4. DOXAZOSIN [Concomitant]
  5. FINASTERIDE [Concomitant]

REACTIONS (1)
  - NO ADVERSE EVENT [None]
